FAERS Safety Report 4321928-7 (Version None)
Quarter: 2004Q1

REPORT INFORMATION
  Report Type: 
  Country: None (occurrence: None)
  Receive Date: 20040319
  Receipt Date: 20040312
  Transmission Date: 20041129
  Serious: Yes (Death, Hospitalization)
  Sender: FDA-Public Use
  Company Number: 04P-163-0252046-00

PATIENT
  Age: 46 Year
  Sex: Female

DRUGS (6)
  1. DEPAKOTE ER [Suspect]
     Indication: BIPOLAR DISORDER
     Dosage: 500 MG, 3 IN 1 D, PER ORAL
     Route: 048
     Dates: start: 20030924, end: 20040223
  2. ABILIFY [Concomitant]
  3. ALPRAZOLAM [Concomitant]
  4. QUETIAPINE [Concomitant]
  5. NEFAZODONE HYDROCHLORIDE [Concomitant]
  6. TRAMADOL HCL [Concomitant]

REACTIONS (9)
  - CARDIOGENIC SHOCK [None]
  - DIABETIC KETOACIDOSIS [None]
  - HYPOTHERMIA [None]
  - HYPOVOLAEMIC SHOCK [None]
  - INFLUENZA LIKE ILLNESS [None]
  - MULTI-ORGAN FAILURE [None]
  - PANCREATITIS NECROTISING [None]
  - RENAL FAILURE ACUTE [None]
  - SEPTIC SHOCK [None]
